FAERS Safety Report 5599896-X (Version None)
Quarter: 2008Q1

REPORT INFORMATION
  Report Type: 
  Country: None (occurrence: None)
  Receive Date: 20080123
  Receipt Date: 20080110
  Transmission Date: 20080703
  Serious: Yes (Other)
  Sender: FDA-Public Use
  Company Number: US-AMGEN-STX260285

PATIENT
  Sex: Female

DRUGS (1)
  1. ENBREL [Suspect]
     Indication: RHEUMATOID ARTHRITIS
     Route: 058
     Dates: start: 20021204

REACTIONS (12)
  - DYSPNOEA [None]
  - EPILEPSY [None]
  - FATIGUE [None]
  - INJECTION SITE PAIN [None]
  - INJECTION SITE PRURITUS [None]
  - LOSS OF CONSCIOUSNESS [None]
  - MADAROSIS [None]
  - NAUSEA [None]
  - PRODUCTIVE COUGH [None]
  - RHEUMATOID ARTHRITIS [None]
  - VOMITING [None]
  - WEIGHT DECREASED [None]
